FAERS Safety Report 4565036-9 (Version None)
Quarter: 2005Q1

REPORT INFORMATION
  Report Type: 
  Country: None (occurrence: None)
  Receive Date: 20050126
  Receipt Date: 20050114
  Transmission Date: 20050727
  Serious: Yes (Death, Other)
  Sender: FDA-Public Use
  Company Number: 2004102112

PATIENT
  Age: 70 Year
  Sex: Male

DRUGS (6)
  1. IRINTOTECAN HYDROCHLORIDE SOLUTION, STERILE (IRINOTECAN HYDROCHLROIDE) [Suspect]
     Indication: COLORECTAL CANCER
     Dosage: 130 + 80 MG (CYCLIC), INTRAVENOUS
     Route: 042
     Dates: start: 20041025, end: 20041025
  2. IRINTOTECAN HYDROCHLORIDE SOLUTION, STERILE (IRINOTECAN HYDROCHLROIDE) [Suspect]
     Indication: COLORECTAL CANCER
     Dosage: 130 + 80 MG (CYCLIC), INTRAVENOUS
     Route: 042
     Dates: start: 20041108, end: 20041108
  3. TEGAFUR (TEGAFUR) [Suspect]
     Indication: COLORECTAL CANCER
     Dosage: 80 MG, ORAL
     Route: 048
     Dates: start: 20041025, end: 20041111
  4. NIFEDIPINE [Concomitant]
  5. FUROSEMIDE [Concomitant]
  6. GLIBENCLAMIDE (FLIBENCLAMIDE) [Concomitant]

REACTIONS (10)
  - ANOREXIA [None]
  - BLOOD UREA INCREASED [None]
  - COLON CANCER RECURRENT [None]
  - INFECTION [None]
  - LEUKOPENIA [None]
  - MALIGNANT NEOPLASM PROGRESSION [None]
  - METASTASES TO LIVER [None]
  - METASTASES TO LUNG [None]
  - NEUTROPENIA [None]
  - PLEURAL EFFUSION [None]
